FAERS Safety Report 6464423-1 (Version None)
Quarter: 2009Q4

REPORT INFORMATION
  Report Type: 
  Country: None (occurrence: None)
  Receive Date: 20091201
  Receipt Date: 20091119
  Transmission Date: 20100525
  Serious: Yes (Hospitalization)
  Sender: FDA-Public Use
  Company Number: US-KINGPHARMUSA00001-K200901475

PATIENT
  Age: 45 Year
  Sex: Female
  Weight: 54.875 kg

DRUGS (4)
  1. EMBEDA [Suspect]
     Indication: BACK PAIN
     Dosage: 400 MG, SINGLE
     Route: 051
     Dates: start: 20091119, end: 20091119
  2. EMBEDA [Suspect]
     Dosage: 100 MG, BID
     Route: 048
     Dates: start: 20091101
  3. TIZANIDINE HCL [Concomitant]
     Indication: MUSCLE SPASMS
     Dosage: UNK
  4. ANTIDEPRESSANTS [Concomitant]
     Indication: DEPRESSION
     Dosage: UNK

REACTIONS (3)
  - AGITATION [None]
  - FEAR [None]
  - INTENTIONAL DRUG MISUSE [None]
